FAERS Safety Report 22377854 (Version 1)
Quarter: 2023Q2

REPORT INFORMATION
  Report Type: Spontaneous
  Country: GB (occurrence: GB)
  Receive Date: 20230529
  Receipt Date: 20230529
  Transmission Date: 20230722
  Serious: Yes (Hospitalization, Other)
  Sender: FDA-Public Use
  Company Number: None

PATIENT
  Sex: Female

DRUGS (4)
  1. KEPPRA [Suspect]
     Active Substance: LEVETIRACETAM
     Indication: Epilepsy
     Dosage: MANUFACTURER: UCB PHARMA LTD
     Route: 048
     Dates: start: 20220302
  2. LAMOTRIGINE [Suspect]
     Active Substance: LAMOTRIGINE
     Indication: Epilepsy
     Dosage: 650 MILLIGRAM, DAILY (300MG IN THE MORNING AND 350MG IN THE NIGHT)
     Route: 048
     Dates: start: 2019
  3. LAMOTRIGINE [Suspect]
     Active Substance: LAMOTRIGINE
     Dosage: 650 MILLIGRAM, ONCE DAILY (QD)
     Route: 048
     Dates: start: 202202
  4. LAMOTRIGINE [Suspect]
     Active Substance: LAMOTRIGINE
     Dosage: 650 MILLIGRAM, ONCE DAILY (QD)
     Route: 048
     Dates: start: 202203

REACTIONS (5)
  - Seizure [Recovered/Resolved]
  - Disorientation [Recovered/Resolved]
  - Illness [Recovered/Resolved]
  - Somnolence [Recovered/Resolved]
  - Product substitution issue [Unknown]

NARRATIVE: CASE EVENT DATE: 20220201
